FAERS Safety Report 12175414 (Version 1)
Quarter: 2016Q1

REPORT INFORMATION
  Report Type: Spontaneous
  Country: TW (occurrence: TW)
  Receive Date: 20160314
  Receipt Date: 20160314
  Transmission Date: 20160526
  Serious: Yes (Other)
  Sender: FDA-Public Use
  Company Number: TW-JNJFOC-20160310485

PATIENT
  Age: 90 Year
  Sex: Male

DRUGS (5)
  1. AMLODIPINE [Concomitant]
     Active Substance: AMLODIPINE BESYLATE
     Indication: PRODUCT USED FOR UNKNOWN INDICATION
     Route: 065
  2. QUETIAPINE [Concomitant]
     Active Substance: QUETIAPINE
     Indication: DELUSION
     Route: 048
  3. QUETIAPINE [Concomitant]
     Active Substance: QUETIAPINE
     Indication: DELUSION
     Dosage: UP TO 62.5 MG/DAY
     Route: 048
  4. PALIPERIDONE [Suspect]
     Active Substance: PALIPERIDONE
     Indication: DEMENTIA
     Route: 048
  5. TAMSULOSINE [Concomitant]
     Active Substance: TAMSULOSIN HYDROCHLORIDE
     Indication: PRODUCT USED FOR UNKNOWN INDICATION
     Route: 065

REACTIONS (3)
  - Product use issue [Unknown]
  - Off label use [Unknown]
  - Delirium [Recovered/Resolved]
